FAERS Safety Report 19057104 (Version 1)
Quarter: 2021Q1

REPORT INFORMATION
  Report Type: Spontaneous
  Country: US (occurrence: US)
  Receive Date: 20210324
  Receipt Date: 20210324
  Transmission Date: 20210420
  Serious: No
  Sender: FDA-Public Use
  Company Number: US-HISAMITSU-2020-US-006860

PATIENT
  Age: 86 Year
  Sex: Female
  Weight: 68.04 kg

DRUGS (4)
  1. SALONPAS PAIN RELIEF [Suspect]
     Active Substance: MENTHOL\METHYL SALICYLATE
     Indication: PRODUCT USED FOR UNKNOWN INDICATION
     Dosage: ONE PATCH TO SHOULDER ONE TIME
     Route: 061
     Dates: start: 20200328, end: 20200328
  2. UNSPECIFIED VITAMINS [Concomitant]
     Active Substance: VITAMINS
  3. UNSPECIFIED EYE DROPS [Concomitant]
     Active Substance: UNSPECIFIED INGREDIENT
  4. UNSPECIFIED HYPERTENSION MEDICATIONS [Concomitant]

REACTIONS (1)
  - Headache [Recovered/Resolved]

NARRATIVE: CASE EVENT DATE: 20200328
